FAERS Safety Report 17826595 (Version 1)
Quarter: 2020Q2

REPORT INFORMATION
  Report Type: Spontaneous
  Country: GB (occurrence: GB)
  Receive Date: 20200526
  Receipt Date: 20200526
  Transmission Date: 20200714
  Serious: Yes (Hospitalization)
  Sender: FDA-Public Use
  Company Number: GB-BAUSCH-BL-2020-015104

PATIENT
  Age: 67 Year
  Sex: Male

DRUGS (14)
  1. TACROLIMUS. [Suspect]
     Active Substance: TACROLIMUS
     Indication: IMMUNOSUPPRESSANT DRUG THERAPY
     Route: 065
     Dates: start: 2014
  2. POSACONAZOLE [Suspect]
     Active Substance: POSACONAZOLE
     Dosage: DISCONTINUED AFTER EIGHT DOSES (DAY 17)
     Route: 042
     Dates: start: 2014, end: 2014
  3. VORICONAZOLE. [Suspect]
     Active Substance: VORICONAZOLE
     Indication: PHAEOHYPHOMYCOSIS
     Dosage: FOR THE INITIAL TWO DOSES
     Route: 042
     Dates: start: 2014, end: 2014
  4. METHYLPREDNISOLONE. [Suspect]
     Active Substance: METHYLPREDNISOLONE
     Indication: IMMUNOSUPPRESSANT DRUG THERAPY
     Route: 042
     Dates: start: 2014
  5. FLUCYTOSINE. [Concomitant]
     Active Substance: FLUCYTOSINE
     Indication: PHAEOHYPHOMYCOSIS
     Route: 042
     Dates: start: 2014
  6. VORICONAZOLE. [Concomitant]
     Active Substance: VORICONAZOLE
     Indication: PHAEOHYPHOMYCOSIS
     Dosage: CEMENT SPACER CONTAINING VORICONAZOLE IN THE RIGHT DISTAL FIBULA
     Route: 042
     Dates: start: 2014
  7. POSACONAZOLE [Suspect]
     Active Substance: POSACONAZOLE
     Dosage: 300MG BID FOR TWO DOSES, FOLLOWED BY 300MG DAILY
     Route: 048
     Dates: start: 2014, end: 2014
  8. FLUCYTOSINE. [Concomitant]
     Active Substance: FLUCYTOSINE
     Route: 048
     Dates: start: 2014
  9. ALEMTUZUMAB [Suspect]
     Active Substance: ALEMTUZUMAB
     Indication: IMMUNOSUPPRESSANT DRUG THERAPY
     Route: 058
     Dates: start: 2014
  10. POSACONAZOLE [Suspect]
     Active Substance: POSACONAZOLE
     Indication: PHAEOHYPHOMYCOSIS
     Route: 048
     Dates: start: 2014
  11. AMOXICILLIN. [Concomitant]
     Active Substance: AMOXICILLIN
     Indication: PHAEOHYPHOMYCOSIS
     Route: 048
     Dates: start: 2014
  12. PREDNISOLONE. [Suspect]
     Active Substance: PREDNISOLONE
     Indication: IMMUNOSUPPRESSANT DRUG THERAPY
     Route: 065
     Dates: start: 2014
  13. VORICONAZOLE. [Suspect]
     Active Substance: VORICONAZOLE
     Dosage: SUBSEQUENT DOSES
     Route: 042
     Dates: start: 2014
  14. LIPOSOMAL AMPHOTERICIN B [Concomitant]
     Active Substance: AMPHOTERICIN B
     Indication: PHAEOHYPHOMYCOSIS
     Route: 065
     Dates: start: 2014

REACTIONS (5)
  - Enterococcal infection [Recovering/Resolving]
  - Phaeohyphomycosis [Recovered/Resolved with Sequelae]
  - Brain abscess [Recovered/Resolved with Sequelae]
  - Blood alkaline phosphatase increased [Unknown]
  - Pain in extremity [Unknown]
